FAERS Safety Report 7875881-X (Version None)
Quarter: 2011Q4

REPORT INFORMATION
  Report Type: 
  Country: None (occurrence: None)
  Receive Date: 20111031
  Receipt Date: 20111020
  Transmission Date: 20120403
  Serious: Yes (Hospitalization)
  Sender: FDA-Public Use
  Company Number: FR-ASTRAZENECA-2011SE63714

PATIENT
  Age: 67 Year
  Sex: Male

DRUGS (3)
  1. JANUMET [Concomitant]
     Dosage: 50MG/1000MG
     Route: 048
     Dates: start: 20080101
  2. GALVUS [Suspect]
     Route: 048
  3. ATACAND [Suspect]
     Route: 048
     Dates: start: 20100101, end: 20110101

REACTIONS (2)
  - LIP OEDEMA [None]
  - TONGUE OEDEMA [None]
